FAERS Safety Report 17444198 (Version 2)
Quarter: 2020Q1

REPORT INFORMATION
  Report Type: Report from Study
  Country: EG (occurrence: EG)
  Receive Date: 20200221
  Receipt Date: 20200311
  Transmission Date: 20200409
  Serious: Yes (Other)
  Sender: FDA-Public Use
  Company Number: EG-EMD SERONO-9146543

PATIENT
  Age: 14 Year
  Sex: Male

DRUGS (1)
  1. REBIF [Suspect]
     Active Substance: INTERFERON BETA-1A
     Indication: MULTIPLE SCLEROSIS
     Route: 058
     Dates: start: 20200211, end: 2020

REACTIONS (8)
  - Suicidal ideation [Not Recovered/Not Resolved]
  - Dyskinesia [Not Recovered/Not Resolved]
  - Abdominal infection [Unknown]
  - Influenza like illness [Not Recovered/Not Resolved]
  - Aggression [Not Recovered/Not Resolved]
  - Nervousness [Not Recovered/Not Resolved]
  - Vomiting [Not Recovered/Not Resolved]
  - Hallucination [Not Recovered/Not Resolved]

NARRATIVE: CASE EVENT DATE: 202002
